FAERS Safety Report 6431644-3 (Version None)
Quarter: 2009Q4

REPORT INFORMATION
  Report Type: 
  Country: None (occurrence: None)
  Receive Date: 20091103
  Receipt Date: 20091019
  Transmission Date: 20100525
  Serious: Yes (Hospitalization)
  Sender: FDA-Public Use
  Company Number: 02100-JPN-07-0766

PATIENT
  Age: 64 Year
  Sex: Female
  Weight: 60 kg

DRUGS (1)
  1. PLETAL [Suspect]
     Indication: CEREBRAL INFARCTION
     Dosage: #1 81 MG, QD #1 ORAL
     Route: 048
     Dates: start: 20050226, end: 20071128

REACTIONS (1)
  - COLITIS ISCHAEMIC [None]
